FAERS Safety Report 9303186 (Version 1)
Quarter: 2013Q1

REPORT INFORMATION
  Report Type: Spontaneous
  Country: ES (occurrence: None)
  Receive Date: 20130116
  Receipt Date: 20130116
  Transmission Date: 20140127
  Serious: Yes (Other)
  Sender: FDA-Public Use
  Company Number: 2012S1001402

PATIENT
  Sex: Male

DRUGS (1)
  1. ALIPZA [Suspect]
     Indication: HYPERCHOLESTEROLAEMIA
     Dosage: 2  MG: 1X; PO?--/--/2011  -  UNKNOWN
     Route: 048
     Dates: start: 2011

REACTIONS (5)
  - Pruritus [None]
  - Photosensitivity reaction [None]
  - Glaucoma [None]
  - Erythema [None]
  - Skin exfoliation [None]
